FAERS Safety Report 21784168 (Version 1)
Quarter: 2022Q4

REPORT INFORMATION
  Report Type: Spontaneous
  Country: US (occurrence: US)
  Receive Date: 20221227
  Receipt Date: 20221227
  Transmission Date: 20230113
  Serious: No
  Sender: FDA-Public Use
  Company Number: US-INCYTE CORPORATION-2022IN012497

PATIENT

DRUGS (2)
  1. JAKAFI [Suspect]
     Active Substance: RUXOLITINIB
     Route: 065
  2. REZUROCK [Suspect]
     Active Substance: BELUMOSUDIL
     Route: 065

REACTIONS (3)
  - Influenza [Unknown]
  - Asthenia [Unknown]
  - Dyspnoea [Unknown]
